FAERS Safety Report 8002061-X (Version None)
Quarter: 2011Q4

REPORT INFORMATION
  Report Type: 
  Country: None (occurrence: None)
  Receive Date: 20111222
  Receipt Date: 20111212
  Transmission Date: 20120403
  Serious: Yes (Other)
  Sender: FDA-Public Use
  Company Number: NZ-MYLANLABS-2011S1025345

PATIENT
  Age: 90 Year
  Sex: Female

DRUGS (11)
  1. FLUOXETINE [Concomitant]
     Indication: DEPRESSION
     Route: 048
  2. OMEPRAZOLE [Concomitant]
     Indication: GASTROOESOPHAGEAL REFLUX DISEASE
     Route: 048
  3. COLECALCIFEROL [Concomitant]
     Indication: VITAMIN D DEFICIENCY
     Route: 048
  4. FENTANYL [Suspect]
     Indication: PELVIC PAIN
     Route: 062
  5. DAPSONE [Concomitant]
     Indication: PRODUCT USED FOR UNKNOWN INDICATION
     Route: 048
  6. ASPIRIN [Concomitant]
     Indication: PRODUCT USED FOR UNKNOWN INDICATION
     Route: 048
  7. LAXSOL [Concomitant]
     Indication: CONSTIPATION
     Route: 048
  8. NORMACOL /01295101/ [Concomitant]
     Indication: CONSTIPATION
     Route: 048
  9. ACETAMINOPHEN [Concomitant]
     Indication: PAIN
     Route: 048
  10. SYNERMOX [Concomitant]
     Indication: BRONCHITIS
     Route: 048
  11. FLUDROCORTISONE ACETATE [Concomitant]
     Indication: PRODUCT USED FOR UNKNOWN INDICATION

REACTIONS (5)
  - NAUSEA [None]
  - ASTHENIA [None]
  - DIZZINESS [None]
  - CONFUSIONAL STATE [None]
  - FEELING HOT [None]
